FAERS Safety Report 23710531 (Version 1)
Quarter: 2024Q2

REPORT INFORMATION
  Report Type: Spontaneous
  Country: US (occurrence: US)
  Receive Date: 20240405
  Receipt Date: 20240405
  Transmission Date: 20240716
  Serious: Yes (Other)
  Sender: FDA-Public Use
  Company Number: US-HIKMA PHARMACEUTICALS-US-H14001-24-02551

PATIENT

DRUGS (2)
  1. DOXORUBICIN [Suspect]
     Active Substance: DOXORUBICIN
     Indication: Rhabdomyosarcoma
     Dosage: 75 MILLIGRAM/SQ. METER
     Route: 065
  2. PEMBROLIZUMAB [Suspect]
     Active Substance: PEMBROLIZUMAB
     Indication: Rhabdomyosarcoma
     Dosage: 200 MILLIGRAM; DURING CYCLE TWO OF DOXORUBICIN
     Route: 065

REACTIONS (3)
  - Hypothyroidism [Unknown]
  - Thyroiditis [Unknown]
  - Jugular vein thrombosis [Unknown]
